FAERS Safety Report 8800006 (Version 1)
Quarter: 2012Q4

REPORT INFORMATION
  Report Type: Spontaneous
  Country: US (occurrence: None)
  Receive Date: 20120918
  Receipt Date: 20120918
  Transmission Date: 20130627
  Serious: Yes (Hospitalization)
  Sender: FDA-Public Use
  Company Number: None

PATIENT
  Age: 91 Year
  Sex: Male
  Weight: 126 kg

DRUGS (1)
  1. POTASSIUM CHLORIDE [Suspect]
     Indication: POTASSIUM REPLACEMENT
     Route: 048
     Dates: start: 20111109, end: 20120913

REACTIONS (1)
  - Hyperkalaemia [None]
